FAERS Safety Report 7302499-X (Version None)
Quarter: 2011Q1

REPORT INFORMATION
  Report Type: 
  Country: None (occurrence: None)
  Receive Date: 20110218
  Receipt Date: 20110214
  Transmission Date: 20110831
  Serious: Yes (Hospitalization)
  Sender: FDA-Public Use
  Company Number: CN-ROXANE LABORATORIES, INC.-2011-RO-00175RO

PATIENT
  Age: 32 Year
  Sex: Male

DRUGS (6)
  1. PREDNISONE [Suspect]
  2. ADEFOVIR DIPIVOXIL KIT [Suspect]
     Indication: ANTIRETROVIRAL THERAPY
     Dosage: 10 MG
  3. PREDNISONE [Suspect]
     Indication: AUTOIMMUNE HEPATITIS
     Dosage: 60 MG
     Route: 048
  4. PREDNISONE [Suspect]
     Dosage: 40 MG
     Route: 048
  5. LAMIVUDINE [Suspect]
     Indication: ANTIRETROVIRAL THERAPY
     Dosage: 0.1 G
  6. PREDNISONE [Suspect]
     Dosage: 30 MG
     Route: 048
     Dates: start: 20090501

REACTIONS (4)
  - ACUTE HEPATIC FAILURE [None]
  - PERITONITIS BACTERIAL [None]
  - HEPATIC ENCEPHALOPATHY [None]
  - HEPATITIS B [None]
